FAERS Safety Report 13771515 (Version 4)
Quarter: 2019Q1

REPORT INFORMATION
  Report Type: Spontaneous
  Country: FR (occurrence: FR)
  Receive Date: 20170720
  Receipt Date: 20190314
  Transmission Date: 20190417
  Serious: Yes (Other)
  Sender: FDA-Public Use
  Company Number: FR-ACCORD-053742

PATIENT
  Age: 64 Year
  Sex: Male

DRUGS (3)
  1. FLUOROURACIL. [Suspect]
     Active Substance: FLUOROURACIL
     Indication: OESOPHAGEAL SQUAMOUS CELL CARCINOMA
     Dosage: FIRST LINE NEOADJUVANT CHEMOTHERAPY,??SECOND COURSE OF CHEMOTHERAPY
  2. CARBOPLATIN. [Concomitant]
     Active Substance: CARBOPLATIN
     Indication: OESOPHAGEAL SQUAMOUS CELL CARCINOMA
     Dosage: FIRST LINE OF NEOADJUVANT CHEMOTHERAPY
  3. CISPLATIN. [Concomitant]
     Active Substance: CISPLATIN
     Indication: OESOPHAGEAL SQUAMOUS CELL CARCINOMA
     Dosage: SECOND LINE CHEMOTHERAPY

REACTIONS (1)
  - Subacute cutaneous lupus erythematosus [Recovered/Resolved]
